FAERS Safety Report 8272216-8 (Version None)
Quarter: 2012Q2

REPORT INFORMATION
  Report Type: 
  Country: None (occurrence: None)
  Receive Date: 20120410
  Receipt Date: 20120327
  Transmission Date: 20120825
  Serious: No
  Sender: FDA-Public Use
  Company Number: US-ENDO PHARMACEUTICALS INC.-OPCR20120045

PATIENT
  Sex: Female

DRUGS (4)
  1. ALBUTEROL [Concomitant]
     Indication: PRODUCT USED FOR UNKNOWN INDICATION
     Dosage: UNKNOWN
  2. LISINOPRIL [Concomitant]
     Indication: HYPERTENSION
     Route: 048
  3. OPANA ER [Suspect]
     Indication: BACK PAIN
     Route: 048
     Dates: start: 20120301
  4. LYRICA [Concomitant]
     Indication: PRODUCT USED FOR UNKNOWN INDICATION
     Dosage: UNKNOWN
     Route: 065

REACTIONS (5)
  - EPISTAXIS [None]
  - HEADACHE [None]
  - THROAT TIGHTNESS [None]
  - BLOOD PRESSURE INCREASED [None]
  - VOMITING [None]
